FAERS Safety Report 21584755 (Version 3)
Quarter: 2023Q1

REPORT INFORMATION
  Report Type: Report from Study
  Country: US (occurrence: US)
  Receive Date: 20221111
  Receipt Date: 20230220
  Transmission Date: 20230417
  Serious: Yes (Hospitalization)
  Sender: FDA-Public Use
  Company Number: US-ABBVIE-4194448

PATIENT
  Age: 48 Year
  Sex: Female

DRUGS (3)
  1. IMBRUVICA [Suspect]
     Active Substance: IBRUTINIB
     Indication: Mantle cell lymphoma
     Route: 048
     Dates: start: 20220701
  2. IMBRUVICA [Suspect]
     Active Substance: IBRUTINIB
     Indication: Mantle cell lymphoma
     Route: 048
     Dates: start: 20210701
  3. IMBRUVICA [Suspect]
     Active Substance: IBRUTINIB
     Indication: Mantle cell lymphoma
     Route: 048

REACTIONS (11)
  - Urinary tract infection [Recovering/Resolving]
  - Back pain [Not Recovered/Not Resolved]
  - Hypoaesthesia [Recovered/Resolved]
  - Vomiting [Recovering/Resolving]
  - Depression [Unknown]
  - Lethargy [Unknown]
  - Abdominal pain upper [Recovering/Resolving]
  - Asthenia [Unknown]
  - Nausea [Recovering/Resolving]
  - Headache [Unknown]
  - Diarrhoea [Unknown]

NARRATIVE: CASE EVENT DATE: 20221001
